FAERS Safety Report 7691720-4 (Version None)
Quarter: 2011Q3

REPORT INFORMATION
  Report Type: 
  Country: None (occurrence: None)
  Receive Date: 20110818
  Receipt Date: 20110811
  Transmission Date: 20111222
  Serious: Yes (Other)
  Sender: FDA-Public Use
  Company Number: US-GLAXOSMITHKLINE-A0939952A

PATIENT
  Age: 62 Year
  Sex: Male

DRUGS (6)
  1. COLCHICINE [Concomitant]
  2. OMEPRAZOLE [Concomitant]
  3. FAMOTIDINE [Concomitant]
  4. FERROUS SULFATE TAB [Concomitant]
  5. PROMACTA [Suspect]
     Indication: IDIOPATHIC THROMBOCYTOPENIC PURPURA
     Dosage: 25MG PER DAY
     Route: 048
     Dates: start: 20100930
  6. TADALAFIL [Concomitant]

REACTIONS (1)
  - LIVER FUNCTION TEST ABNORMAL [None]
